FAERS Safety Report 6030835-3 (Version None)
Quarter: 2009Q1

REPORT INFORMATION
  Report Type: 
  Country: None (occurrence: None)
  Receive Date: 20090106
  Receipt Date: 20081222
  Transmission Date: 20090719
  Serious: Yes (Other)
  Sender: FDA-Public Use
  Company Number: 2008S1022672

PATIENT
  Age: 56 Year
  Sex: Male

DRUGS (7)
  1. AMIODARONE HCL [Suspect]
     Indication: VENTRICULAR TACHYCARDIA
     Dosage: 400 MG; NULL_1_DAY
  2. MEXILETINE HYDROCHLORIDE [Concomitant]
  3. FUROSEMIDE [Concomitant]
  4. SPIRONOLACTONE [Concomitant]
  5. RAMIPRIL [Concomitant]
  6. LOSARTAN [Concomitant]
  7. DIGOXIN [Concomitant]

REACTIONS (5)
  - ATRIAL FLUTTER [None]
  - DISEASE RECURRENCE [None]
  - LUNG DISORDER [None]
  - PLEURAL EFFUSION [None]
  - VENTRICULAR TACHYCARDIA [None]
